FAERS Safety Report 8356422-X (Version None)
Quarter: 2012Q2

REPORT INFORMATION
  Report Type: 
  Country: None (occurrence: None)
  Receive Date: 20120514
  Receipt Date: 20120508
  Transmission Date: 20120825
  Serious: Yes (Hospitalization)
  Sender: FDA-Public Use
  Company Number: CA-BAYER-2012-045229

PATIENT
  Age: 50 Year
  Sex: Male

DRUGS (6)
  1. CARBOCAL D [Concomitant]
  2. APO-DIAZEPAM [Concomitant]
  3. BETASERON [Suspect]
     Dosage: 0.25 MG, UNK
     Dates: start: 19960901
  4. OXYBUTYNIN [Concomitant]
  5. VITAMIN B-12 [Concomitant]
  6. LYRICA [Concomitant]

REACTIONS (1)
  - CELLULITIS [None]
